FAERS Safety Report 10070582 (Version 2)
Quarter: 2014Q2

REPORT INFORMATION
  Report Type: Spontaneous
  Country: JP (occurrence: JP)
  Receive Date: 20140410
  Receipt Date: 20140604
  Transmission Date: 20141212
  Serious: Yes (Other)
  Sender: FDA-Public Use
  Company Number: JP-JNJFOC-20140404389

PATIENT
  Age: 67 Year
  Sex: Male

DRUGS (7)
  1. SOVRIAD [Suspect]
     Indication: CHRONIC HEPATITIS C
     Route: 048
     Dates: start: 20140306, end: 20140408
  2. PEGINTRON [Suspect]
     Indication: CHRONIC HEPATITIS C
     Route: 058
     Dates: start: 20140506
  3. REBETOL [Suspect]
     Indication: CHRONIC HEPATITIS C
     Route: 048
     Dates: start: 20140306
  4. LOXONIN [Concomitant]
     Indication: PYREXIA
     Route: 048
     Dates: start: 20140306
  5. FAMOTIDINE [Concomitant]
     Route: 048
     Dates: start: 20140410
  6. XYZAL [Concomitant]
     Route: 048
     Dates: start: 20140408, end: 20140412
  7. VITAMIN [Concomitant]
     Indication: CHRONIC HEPATITIS C
     Route: 065
     Dates: start: 20140306, end: 20140408

REACTIONS (6)
  - Jaundice [Unknown]
  - Blood bilirubin increased [Unknown]
  - Platelet count decreased [Unknown]
  - Haemoglobin decreased [Unknown]
  - Drug eruption [Unknown]
  - Blood creatinine decreased [Unknown]
